FAERS Safety Report 7581694-9 (Version None)
Quarter: 2011Q2

REPORT INFORMATION
  Report Type: 
  Country: None (occurrence: None)
  Receive Date: 20110629
  Receipt Date: 20110627
  Transmission Date: 20111010
  Serious: Yes (Hospitalization, Other)
  Sender: FDA-Public Use
  Company Number: US-PFIZER INC-2011142360

PATIENT
  Sex: Female
  Weight: 136 kg

DRUGS (2)
  1. ATENOLOL [Concomitant]
     Indication: CARDIAC DISORDER
     Dosage: 25 MG,DAILY
     Route: 048
  2. TIKOSYN [Suspect]
     Indication: ATRIAL FIBRILLATION
     Dosage: 500 MG, 2X/DAY
     Route: 048
     Dates: start: 20110531, end: 20110627

REACTIONS (7)
  - DEHYDRATION [None]
  - SINUS RHYTHM [None]
  - THIRST [None]
  - SWELLING [None]
  - DIZZINESS [None]
  - HEART RATE INCREASED [None]
  - DYSPNOEA [None]
